FAERS Safety Report 4466192-3 (Version None)
Quarter: 2004Q3

REPORT INFORMATION
  Report Type: 
  Country: None (occurrence: None)
  Receive Date: 20040930
  Receipt Date: 20040915
  Transmission Date: 20050211
  Serious: No
  Sender: FDA-Public Use
  Company Number: 2004AP04874

PATIENT
  Age: 78 Year
  Sex: Female

DRUGS (1)
  1. XYLOCAINE [Suspect]
     Indication: ANAESTHESIA
     Dosage: 80 MG DAILY IOC
     Dates: start: 20020730, end: 20020730

REACTIONS (4)
  - DIPLOPIA [None]
  - MYOSITIS [None]
  - POST PROCEDURAL COMPLICATION [None]
  - STRABISMUS [None]
